FAERS Safety Report 10543096 (Version 1)
Quarter: 2014Q4

REPORT INFORMATION
  Report Type: Spontaneous
  Country: US (occurrence: None)
  Receive Date: 20141024
  Receipt Date: 20141024
  Transmission Date: 20150529
  Serious: No
  Sender: FDA-Public Use
  Company Number: None

PATIENT
  Age: 29 Year
  Sex: Female
  Weight: 49.9 kg

DRUGS (1)
  1. METHYLPREDNISOLONE 4 MG DOSEPK CADISTA [Suspect]
     Active Substance: METHYLPREDNISOLONE
     Indication: DRUG THERAPY
     Dosage: 6 PILLS ON FIRST DAY, TAKEN BY MOUTH
     Route: 048
     Dates: start: 20140717, end: 20140717

REACTIONS (2)
  - Neuralgia [None]
  - Ear pain [None]

NARRATIVE: CASE EVENT DATE: 20140717
